FAERS Safety Report 5877155-5 (Version None)
Quarter: 2008Q3

REPORT INFORMATION
  Report Type: 
  Country: None (occurrence: None)
  Receive Date: 20080910
  Receipt Date: 20080905
  Transmission Date: 20090109
  Serious: Yes (Other)
  Sender: FDA-Public Use
  Company Number: US-B.I. PHARMACEUTICALS,INC./RIDGEFIELD-2008-BP-12792BP

PATIENT
  Sex: Male

DRUGS (5)
  1. MIRAPEX [Suspect]
     Indication: PARKINSON'S DISEASE
     Dosage: 2MG
     Dates: end: 20071012
  2. STALEVO 100 [Concomitant]
  3. SINEMET [Concomitant]
  4. ZELAPAR [Concomitant]
  5. APOKYN [Concomitant]

REACTIONS (5)
  - DEEP BRAIN STIMULATION [None]
  - DISTURBANCE IN SOCIAL BEHAVIOUR [None]
  - IMPRISONMENT [None]
  - IMPULSE-CONTROL DISORDER [None]
  - VOYEURISM [None]
